FAERS Safety Report 4931200-X (Version None)
Quarter: 2006Q1

REPORT INFORMATION
  Report Type: 
  Country: None (occurrence: None)
  Receive Date: 20060302
  Receipt Date: 20051114
  Transmission Date: 20060701
  Serious: Yes (Hospitalization, Other)
  Sender: FDA-Public Use
  Company Number: US-MERCK-0511USA02271

PATIENT
  Age: 74 Year
  Sex: Male
  Weight: 116 kg

DRUGS (7)
  1. VIOXX [Suspect]
     Indication: ARTHRITIS
     Route: 048
     Dates: start: 20021029, end: 20021029
  2. VIOXX [Suspect]
     Route: 048
     Dates: start: 20030401, end: 20030401
  3. VIOXX [Suspect]
     Route: 048
     Dates: start: 20030808, end: 20040828
  4. AMIODARONE HYDROCHLORIDE [Concomitant]
     Route: 065
  5. ASPIRIN [Concomitant]
     Route: 065
  6. MEXILETINE HYDROCHLORIDE [Concomitant]
     Route: 065
  7. VIOXX [Suspect]
     Route: 048
     Dates: start: 20020103, end: 20020103

REACTIONS (4)
  - ARRHYTHMIA [None]
  - CARDIAC FAILURE CONGESTIVE [None]
  - DYSPNOEA [None]
  - MYOCARDIAL INFARCTION [None]
